FAERS Safety Report 5894475-9 (Version None)
Quarter: 2008Q3

REPORT INFORMATION
  Report Type: 
  Country: None (occurrence: None)
  Receive Date: 20080923
  Receipt Date: 20080923
  Transmission Date: 20090109
  Serious: Yes (Hospitalization)
  Sender: FDA-Public Use
  Company Number: None

PATIENT
  Sex: Female
  Weight: 62.6 kg

DRUGS (4)
  1. CISPLATIN [Suspect]
     Dosage: 81.6 MG
  2. DOXORUBICIN HYDROCHLORIDE [Suspect]
     Dosage: 73.5 MG
  3. PACLITAXEL [Suspect]
     Dosage: 261.3 MG
  4. NEULASTA [Suspect]
     Dosage: 6 MG

REACTIONS (10)
  - ANAEMIA [None]
  - ASPIRATION [None]
  - BRADYCARDIA [None]
  - FEBRILE NEUTROPENIA [None]
  - PANCYTOPENIA [None]
  - RENAL FAILURE ACUTE [None]
  - SEPSIS [None]
  - TACHYCARDIA [None]
  - UNRESPONSIVE TO STIMULI [None]
  - VOMITING [None]
